FAERS Safety Report 5612182-4 (Version None)
Quarter: 2008Q1

REPORT INFORMATION
  Report Type: 
  Country: None (occurrence: None)
  Receive Date: 20080128
  Receipt Date: 20070928
  Transmission Date: 20080703
  Serious: No
  Sender: FDA-Public Use
  Company Number: 2007S1009863

PATIENT
  Sex: Male

DRUGS (1)
  1. ELEVA (SERTRALINE) [Suspect]
     Dosage: 50 MG;TABLET;ORAL;EVERY MORNING
     Route: 048
     Dates: start: 20070323

REACTIONS (1)
  - DRUG INEFFECTIVE [None]
